FAERS Safety Report 10370145 (Version 1)
Quarter: 2014Q3

REPORT INFORMATION
  Report Type: Spontaneous
  Country: US (occurrence: None)
  Receive Date: 20140806
  Receipt Date: 20140806
  Transmission Date: 20150326
  Serious: Yes (Other)
  Sender: FDA-Public Use
  Company Number: None

PATIENT
  Age: 59 Year
  Sex: Female

DRUGS (1)
  1. RESTASIS [Suspect]
     Active Substance: CYCLOSPORINE
     Dosage: 1 DROP BID OD
     Route: 047
     Dates: start: 20140725

REACTIONS (2)
  - Burning sensation [None]
  - Erythema [None]

NARRATIVE: CASE EVENT DATE: 20140725
